FAERS Safety Report 9700724 (Version 1)
Quarter: 2013Q4

REPORT INFORMATION
  Report Type: Report from Study
  Country: US (occurrence: US)
  Receive Date: 20131121
  Receipt Date: 20131121
  Transmission Date: 20140711
  Serious: Yes (Other)
  Sender: FDA-Public Use
  Company Number: US-JNJFOC-20131108830

PATIENT
  Age: 66 Year
  Sex: Female
  Weight: 85.28 kg

DRUGS (11)
  1. REMICADE [Suspect]
     Indication: RHEUMATOID ARTHRITIS
     Route: 042
  2. REMICADE [Suspect]
     Indication: RHEUMATOID ARTHRITIS
     Route: 042
     Dates: start: 20130913, end: 20130913
  3. METHOTREXATE [Concomitant]
     Route: 048
     Dates: start: 2008, end: 20130913
  4. MIRAPEX [Concomitant]
     Indication: RESTLESS LEGS SYNDROME
     Dosage: STARTED 7 OR 8 YEARS AGO
     Route: 048
  5. KLONOPIN [Concomitant]
     Indication: MUSCLE SPASMS
     Dosage: STARTED 7 OR 8 YEARS AGO
     Route: 048
  6. LIPITOR [Concomitant]
     Indication: BLOOD CHOLESTEROL
     Route: 048
     Dates: start: 2012
  7. LASIX [Concomitant]
     Indication: JOINT SWELLING
     Route: 048
     Dates: start: 2013
  8. SYNTHROID [Concomitant]
     Indication: HYPOTHYROIDISM
     Route: 048
  9. CLARINEX [Concomitant]
     Indication: MULTIPLE ALLERGIES
     Route: 048
     Dates: start: 2011
  10. NASONEX [Concomitant]
     Indication: MULTIPLE ALLERGIES
     Route: 045
  11. METFORMIN [Concomitant]
     Indication: DIABETES MELLITUS
     Route: 048

REACTIONS (5)
  - Oxygen saturation decreased [Recovering/Resolving]
  - Infusion related reaction [Recovering/Resolving]
  - Herpes zoster [Recovering/Resolving]
  - Investigation abnormal [Unknown]
  - Pulmonary function test abnormal [Unknown]
